FAERS Safety Report 4324161-8 (Version None)
Quarter: 2004Q1

REPORT INFORMATION
  Report Type: 
  Country: None (occurrence: None)
  Receive Date: 20040326
  Receipt Date: 20040102
  Transmission Date: 20041129
  Serious: No
  Sender: FDA-Public Use
  Company Number: US-GLAXOSMITHKLINE-A0490995A

PATIENT
  Sex: Female

DRUGS (2)
  1. ADVAIR DISKUS 100/50 [Suspect]
     Route: 055
     Dates: start: 20031217
  2. SINGULAIR [Suspect]
     Dates: start: 20031217

REACTIONS (4)
  - APHONIA [None]
  - HEADACHE [None]
  - NASAL CONGESTION [None]
  - OLIGOMENORRHOEA [None]
